FAERS Safety Report 8859177 (Version 2)
Quarter: 2012Q4

REPORT INFORMATION
  Report Type: 
  Country: US (occurrence: None)
  Receive Date: 20121024
  Receipt Date: 20121109
  Transmission Date: 20130627
  Serious: Yes (Life-Threatening, Hospitalization, Disabling)
  Sender: FDA-Public Use
  Company Number: None

PATIENT
  Age: 60 Year
  Sex: Female
  Weight: 74.84 kg

DRUGS (3)
  1. METHYLPREDNISOLONE [Suspect]
     Indication: KNEE PAIN
     Dosage: unknon once IM
     Route: 030
     Dates: start: 20101101, end: 20101101
  2. METHYLPREDNISOLONE [Suspect]
     Indication: SWELLING OF KNEES
     Dosage: unknon once IM
     Route: 030
     Dates: start: 20101101, end: 20101101
  3. CORTISONE [Suspect]

REACTIONS (6)
  - Injection site pain [None]
  - Injection site infection [None]
  - Abasia [None]
  - Walking aid user [None]
  - Weight increased [None]
  - Product quality issue [None]
